FAERS Safety Report 5255200-8 (Version None)
Quarter: 2007Q1

REPORT INFORMATION
  Report Type: 
  Country: None (occurrence: None)
  Receive Date: 20070305
  Receipt Date: 20070302
  Transmission Date: 20070707
  Serious: Yes (Hospitalization)
  Sender: FDA-Public Use
  Company Number: US-GLAXOSMITHKLINE-A0641442A

PATIENT
  Age: 68 Year
  Sex: Male

DRUGS (5)
  1. ABREVA [Suspect]
     Route: 061
     Dates: start: 20031210
  2. UNSPECIFIED MEDICATION [Concomitant]
  3. ACTOS [Concomitant]
  4. PROSCAR [Concomitant]
  5. PRAVACHOL [Concomitant]

REACTIONS (13)
  - AMNESIA [None]
  - ANXIETY [None]
  - APHASIA [None]
  - BLOOD GLUCOSE INCREASED [None]
  - BRAIN ABSCESS [None]
  - CEREBROVASCULAR ACCIDENT [None]
  - ENCEPHALITIS HERPES [None]
  - FEAR [None]
  - GAIT DISTURBANCE [None]
  - INFECTION [None]
  - MEMORY IMPAIRMENT [None]
  - OCHLOPHOBIA [None]
  - SPEECH DISORDER [None]
